FAERS Safety Report 4297778-7 (Version None)
Quarter: 2004Q1

REPORT INFORMATION
  Report Type: 
  Country: None (occurrence: None)
  Receive Date: 20040217
  Receipt Date: 20040217
  Transmission Date: 20041129
  Serious: No
  Sender: FDA-Public Use
  Company Number: None

PATIENT
  Age: 57 Year
  Sex: Female
  Weight: 72.2 kg

DRUGS (8)
  1. ABILIFY [Suspect]
     Indication: SCHIZOPHRENIA
     Dosage: 15MG QD ORAL
     Route: 048
     Dates: start: 20031202, end: 20031214
  2. METFORMIN HCL [Concomitant]
  3. ASPIRIN [Concomitant]
  4. GLIPIZIDE [Concomitant]
  5. NOVOLIN R [Concomitant]
  6. CHLORPROMAZINE [Concomitant]
  7. VIT AND D OINT [Concomitant]
  8. BETAMETHASONE [Concomitant]

REACTIONS (2)
  - GAIT DISTURBANCE [None]
  - TREMOR [None]
